FAERS Safety Report 5323265-0 (Version None)
Quarter: 2007Q2

REPORT INFORMATION
  Report Type: 
  Country: None (occurrence: None)
  Receive Date: 20070220
  Receipt Date: 20061201
  Transmission Date: 20071010
  Serious: No
  Sender: FDA-Public Use
  Company Number: WAES 0612USA00408

PATIENT
  Age: 38 Year
  Sex: Female
  Weight: 57.6068 kg

DRUGS (2)
  1. JANUVIA [Suspect]
     Indication: HYPERGLYCAEMIA
     Dosage: 100 MG/DAILY/PO
     Route: 048
     Dates: start: 20061107, end: 20061113
  2. SYNTHROID [Concomitant]

REACTIONS (2)
  - RASH PRURITIC [None]
  - SWELLING FACE [None]
